FAERS Safety Report 23922807 (Version 1)
Quarter: 2024Q2

REPORT INFORMATION
  Report Type: Spontaneous
  Country: US (occurrence: US)
  Receive Date: 20240531
  Receipt Date: 20240531
  Transmission Date: 20240715
  Serious: No
  Sender: FDA-Public Use
  Company Number: US-CELLTRION INC.-2024US012271

PATIENT

DRUGS (6)
  1. ADALIMUMAB [Suspect]
     Active Substance: ADALIMUMAB\ISOPROPYL ALCOHOL
     Indication: Pyoderma gangrenosum
     Dosage: UNK
  2. ADALIMUMAB [Suspect]
     Active Substance: ADALIMUMAB\ISOPROPYL ALCOHOL
     Dosage: 40 MG, EVERY TWO WEEKS
  3. PREDNISONE [Suspect]
     Active Substance: PREDNISONE
     Indication: Pyoderma gangrenosum
     Dosage: HIGH-DOSE, LONG-TERM TAPER
  4. PREDNISONE [Suspect]
     Active Substance: PREDNISONE
     Dosage: 10 MG PER DAY
  5. PREDNISONE [Suspect]
     Active Substance: PREDNISONE
     Dosage: 1 MG PER DAY
  6. DOXYCYCLINE [Suspect]
     Active Substance: DOXYCYCLINE\DOXYCYCLINE HYCLATE
     Indication: Superinfection

REACTIONS (1)
  - Drug effective for unapproved indication [Unknown]
